FAERS Safety Report 8444737-6 (Version None)
Quarter: 2012Q2

REPORT INFORMATION
  Report Type: 
  Country: None (occurrence: None)
  Receive Date: 20120618
  Receipt Date: 20120611
  Transmission Date: 20120825
  Serious: Yes (Hospitalization)
  Sender: FDA-Public Use
  Company Number: US-B.I. PHARMACEUTICALS,INC./RIDGEFIELD-2012-BP-13440BP

PATIENT
  Sex: Male

DRUGS (3)
  1. DILTIAZEM HYDROCHOLORIDE [Concomitant]
     Indication: ARRHYTHMIA
  2. PRADAXA [Suspect]
     Indication: ATRIAL FIBRILLATION
     Dosage: 300 MG
     Route: 048
     Dates: start: 20120503, end: 20120607
  3. METOPROLOL SUCCINATE [Concomitant]
     Indication: HYPERTENSION

REACTIONS (1)
  - ARTERIAL THROMBOSIS LIMB [None]
